FAERS Safety Report 5224705-8 (Version None)
Quarter: 2007Q1

REPORT INFORMATION
  Report Type: 
  Country: None (occurrence: None)
  Receive Date: 20070131
  Receipt Date: 20070122
  Transmission Date: 20070707
  Serious: Yes (Hospitalization, Other)
  Sender: FDA-Public Use
  Company Number: GB-JNJFOC-20070105465

PATIENT
  Sex: Male
  Weight: 80 kg

DRUGS (5)
  1. REMICADE [Suspect]
     Indication: ANKYLOSING SPONDYLITIS
     Route: 042
  2. METHOTREXATE [Concomitant]
     Route: 065
  3. ARTHROTEC [Concomitant]
     Route: 065
  4. CO-CODAMOL [Concomitant]
     Route: 065
  5. FOLIC ACID [Concomitant]
     Route: 065

REACTIONS (3)
  - FEMUR FRACTURE [None]
  - FIBULA FRACTURE [None]
  - TIBIA FRACTURE [None]
